FAERS Safety Report 6590223-8 (Version None)
Quarter: 2010Q1

REPORT INFORMATION
  Report Type: 
  Country: None (occurrence: None)
  Receive Date: 20100219
  Receipt Date: 20100208
  Transmission Date: 20100710
  Serious: Yes (Other)
  Sender: FDA-Public Use
  Company Number: ES-WYE-H13512810

PATIENT
  Age: 85 Year
  Sex: Male

DRUGS (8)
  1. TRANGOREX [Suspect]
     Dosage: 200 MG TABLET, DOSE UNSPEC
     Route: 048
     Dates: start: 20040101, end: 20081123
  2. DONEPEZIL HCL [Concomitant]
     Dosage: UNSPECIFIED
     Dates: start: 20080214
  3. ACTIRA [Suspect]
     Indication: CHRONIC OBSTRUCTIVE PULMONARY DISEASE
     Dosage: UNSPECIFIED
     Route: 048
     Dates: start: 20081114, end: 20081220
  4. PULMICORT [Concomitant]
     Dosage: UNSPECIFIED
     Dates: start: 20051201
  5. RIVOTRIL [Concomitant]
     Dosage: UNSPECIFIED
     Dates: start: 20040601
  6. SINTROM [Concomitant]
     Dosage: UNSPECIFIED
     Dates: start: 20040101
  7. LORAZEPAM [Concomitant]
     Dosage: UNSPECIFIED
     Dates: start: 20080229
  8. AXURA [Concomitant]
     Dosage: UNSPECIFIED
     Dates: start: 20051201

REACTIONS (2)
  - ATRIAL FIBRILLATION [None]
  - HICCUPS [None]
